FAERS Safety Report 24574593 (Version 2)
Quarter: 2024Q4

REPORT INFORMATION
  Report Type: Spontaneous
  Country: US (occurrence: US)
  Receive Date: 20241104
  Receipt Date: 20241122
  Transmission Date: 20250114
  Serious: Yes (Death, Life-Threatening, Hospitalization, Other)
  Sender: MERCK
  Company Number: US-009507513-2410USA012381

PATIENT
  Sex: Male

DRUGS (1)
  1. KEYTRUDA [Suspect]
     Active Substance: PEMBROLIZUMAB
     Indication: Malignant melanoma
     Dosage: UNK UNK, QW
     Dates: end: 2024

REACTIONS (10)
  - Cardiac arrest [Fatal]
  - Pulmonary oedema [Unknown]
  - Neuropathy peripheral [Unknown]
  - Oxygen saturation abnormal [Unknown]
  - Ill-defined disorder [Unknown]
  - Drug intolerance [Unknown]
  - Weight decreased [Unknown]
  - Fatigue [Unknown]
  - Taste disorder [Unknown]
  - Inappropriate schedule of product administration [Unknown]

NARRATIVE: CASE EVENT DATE: 20241001
